FAERS Safety Report 16350820 (Version 1)
Quarter: 2019Q2

REPORT INFORMATION
  Report Type: Spontaneous
  Country: ES (occurrence: ES)
  Receive Date: 20190524
  Receipt Date: 20190524
  Transmission Date: 20190711
  Serious: Yes (Hospitalization)
  Sender: FDA-Public Use
  Company Number: ES-SUN PHARMACEUTICAL INDUSTRIES LTD-2019RR-208605

PATIENT
  Age: 78 Year
  Sex: Male

DRUGS (6)
  1. FUROSEMIDA (1615A) [Concomitant]
     Active Substance: FUROSEMIDE
     Indication: OEDEMA
     Dosage: 40 MILLIGRAM, DAILY
     Route: 048
     Dates: start: 2013
  2. SIROLIMUS (1269A) [Concomitant]
     Indication: LIVER TRANSPLANT
     Dosage: 2 MILLIGRAM, DAILY
     Route: 048
     Dates: start: 200607
  3. ATORVASTATINA + EZETIMIBA [Interacting]
     Active Substance: ATORVASTATIN\EZETIMIBE
     Indication: DYSLIPIDAEMIA
     Dosage: ()
     Route: 048
     Dates: start: 201605
  4. ACENOCUMAROL (220A) [Interacting]
     Active Substance: ACENOCOUMAROL
     Indication: ATRIAL FIBRILLATION
     Dosage: ()
     Route: 048
     Dates: start: 201612, end: 20190118
  5. ALLOPURINOL. [Suspect]
     Active Substance: ALLOPURINOL
     Indication: HYPERURICAEMIA
     Dosage: 100 MILLIGRAM, DAILY
     Route: 048
     Dates: start: 201705
  6. PARICALCITOL (2860A) [Concomitant]
     Indication: LIVER TRANSPLANT
     Dosage: 1 MICROGRAM, DAILY
     Route: 048
     Dates: start: 2017

REACTIONS (1)
  - Haemorrhage intracranial [Recovered/Resolved with Sequelae]

NARRATIVE: CASE EVENT DATE: 20190119
